FAERS Safety Report 8589862-4 (Version None)
Quarter: 2012Q3

REPORT INFORMATION
  Report Type: 
  Country: None (occurrence: None)
  Receive Date: 20120813
  Receipt Date: 20120807
  Transmission Date: 20120928
  Serious: Yes (Hospitalization)
  Sender: FDA-Public Use
  Company Number: JP-VERTEX PHARMACEUTICALS INC.-AE-2012-011887

PATIENT
  Age: 51 Year
  Sex: Female

DRUGS (6)
  1. PEGINTERFERON ALFA-2B [Concomitant]
     Route: 058
     Dates: start: 20120510
  2. RIBAVIRIN [Concomitant]
     Route: 048
     Dates: start: 20120510, end: 20120614
  3. ACETAMINOPHEN [Concomitant]
     Route: 048
     Dates: start: 20120711
  4. VOLTAREN [Concomitant]
     Route: 048
  5. TELAVIC (TELAPREVIR) [Suspect]
     Indication: HEPATITIS C
     Route: 048
     Dates: start: 20120510, end: 20120710
  6. RIBAVIRIN [Concomitant]
     Route: 048
     Dates: start: 20120615

REACTIONS (1)
  - TOXIC SKIN ERUPTION [None]
